FAERS Safety Report 19099637 (Version 6)
Quarter: 2024Q3

REPORT INFORMATION
  Report Type: Spontaneous
  Country: FR (occurrence: FR)
  Receive Date: 20210407
  Receipt Date: 20240923
  Transmission Date: 20241017
  Serious: Yes (Life-Threatening, Hospitalization, Other)
  Sender: AUROBINDO
  Company Number: FR-AMGEN-FRASP2021041877

PATIENT
  Age: 56 Year
  Sex: Male

DRUGS (7)
  1. CINACALCET [Suspect]
     Active Substance: CINACALCET
     Indication: Hyperparathyroidism primary
     Dosage: UNK
     Route: 065
  2. CINACALCET [Suspect]
     Active Substance: CINACALCET
     Indication: Hypercalcaemia
  3. ESOMEPRAZOLE [Suspect]
     Active Substance: ESOMEPRAZOLE
     Indication: Gastrinoma
     Dosage: 80 MILLIGRAM, ONCE A DAY
     Route: 065
     Dates: start: 200508, end: 2017
  4. ESOMEPRAZOLE [Suspect]
     Active Substance: ESOMEPRAZOLE
     Indication: Hyperchlorhydria
     Dosage: 120 MILLIGRAM, ONCE A DAY
     Route: 065
     Dates: start: 201806
  5. ESOMEPRAZOLE [Suspect]
     Active Substance: ESOMEPRAZOLE
     Indication: Oesophagitis ulcerative
     Dosage: 240 MILLIGRAM, ONCE A DAY
     Route: 065
     Dates: start: 20180619, end: 201807
  6. CABERGOLINE [Concomitant]
     Active Substance: CABERGOLINE
     Indication: Blood prolactin increased
     Dosage: UNK
     Route: 065
  7. RANITIDINE [Concomitant]
     Active Substance: RANITIDINE
     Indication: Gastrinoma
     Dosage: 600 MILLIGRAM, ONCE A DAY
     Route: 065

REACTIONS (24)
  - Cerebellar ataxia [Not Recovered/Not Resolved]
  - Metabolic alkalosis [Unknown]
  - Seizure [Unknown]
  - Gastrinoma [Unknown]
  - Hypokalaemia [Unknown]
  - Renal impairment [Unknown]
  - Gastritis hypertrophic [Unknown]
  - Pancreatic mass [Unknown]
  - Erosive duodenitis [Unknown]
  - Hypomagnesaemia [Recovered/Resolved]
  - Oesophagitis ulcerative [Unknown]
  - Dehydration [Unknown]
  - Electrolyte imbalance [Unknown]
  - Gastrointestinal haemorrhage [Recovered/Resolved]
  - Vomiting [Unknown]
  - Weight decreased [Unknown]
  - Dysphagia [Unknown]
  - Loss of consciousness [Recovering/Resolving]
  - Cerebellar syndrome [Recovering/Resolving]
  - Melaena [Unknown]
  - Nystagmus [Unknown]
  - Vertigo [Unknown]
  - Gait disturbance [Recovering/Resolving]
  - Abdominal pain [Unknown]

NARRATIVE: CASE EVENT DATE: 20180101
